FAERS Safety Report 5279730-8 (Version None)
Quarter: 2007Q1

REPORT INFORMATION
  Report Type: 
  Country: None (occurrence: None)
  Receive Date: 20061213
  Receipt Date: 20060120
  Transmission Date: 20070707
  Serious: No
  Sender: FDA-Public Use
  Company Number: 2006UW01063

PATIENT
  Age: 30 Year
  Sex: Female

DRUGS (3)
  1. SEROQUEL [Suspect]
     Dosage: 500 MG DAILY PO
     Route: 048
  2. ZOLOFT [Suspect]
     Dosage: 200 MG DAILY
  3. LAMICTAL [Concomitant]

REACTIONS (2)
  - EYE DISORDER [None]
  - TARDIVE DYSKINESIA [None]
